FAERS Safety Report 11088497 (Version 2)
Quarter: 2015Q2

REPORT INFORMATION
  Report Type: Other
  Country: IT (occurrence: IT)
  Receive Date: 20150504
  Receipt Date: 20150519
  Transmission Date: 20150821
  Serious: Yes (Hospitalization)
  Sender: FDA-Public Use
  Company Number: IT-MYLANLABS-2015M1013609

PATIENT

DRUGS (8)
  1. RISPERDAL [Interacting]
     Active Substance: RISPERIDONE
     Indication: ABNORMAL BEHAVIOUR
  2. METOCLOPRAMIDE. [Interacting]
     Active Substance: METOCLOPRAMIDE
     Indication: INFLUENZA
     Dosage: UNK
  3. RISPERDAL [Interacting]
     Active Substance: RISPERIDONE
     Indication: TIC
     Dosage: 0.25 MG, BID
     Route: 048
     Dates: start: 20140928
  4. BUTAMIRATE CITRATE [Interacting]
     Active Substance: BUTAMIRATE CITRATE
     Indication: INFLUENZA
     Dosage: UNK
  5. DESAMETHASONE [Interacting]
     Active Substance: DEXAMETHASONE
     Indication: INFLUENZA
     Dosage: UNK
  6. IBUPROFEN LYSINATE [Interacting]
     Active Substance: IBUPROFEN LYSINE
     Indication: INFLUENZA
     Dosage: UNK
  7. DOMPERIDONE MALEATE [Interacting]
     Active Substance: DOMPERIDONE MALEATE
     Indication: INFLUENZA
     Dosage: UNK
  8. PARACETAMOL [Suspect]
     Active Substance: ACETAMINOPHEN
     Indication: INFLUENZA
     Dosage: UNK

REACTIONS (2)
  - Drug interaction [Unknown]
  - Bradycardia [Recovered/Resolved]

NARRATIVE: CASE EVENT DATE: 20150118
